FAERS Safety Report 18098633 (Version 5)
Quarter: 2024Q3

REPORT INFORMATION
  Report Type: Report from Study
  Country: BR (occurrence: BR)
  Receive Date: 20200731
  Receipt Date: 20240924
  Transmission Date: 20241017
  Serious: Yes (Other)
  Sender: NOVARTIS
  Company Number: NVSC2020BR007607

PATIENT
  Age: 63 Year
  Sex: Female
  Weight: 63 kg

DRUGS (9)
  1. LOSARTAN [Suspect]
     Active Substance: LOSARTAN\LOSARTAN POTASSIUM
     Indication: Hypertension
     Dosage: 50 MG, QD
     Route: 048
  2. COSENTYX [Suspect]
     Active Substance: SECUKINUMAB
     Indication: Psoriasis
     Dosage: 300 MG, QMO
     Route: 058
     Dates: start: 20190809
  3. COSENTYX [Suspect]
     Active Substance: SECUKINUMAB
     Dosage: 300 MG
     Route: 065
     Dates: start: 201908
  4. COSENTYX [Suspect]
     Active Substance: SECUKINUMAB
     Dosage: 300 MG, QMO
     Route: 058
     Dates: end: 20200306
  5. COSENTYX [Suspect]
     Active Substance: SECUKINUMAB
     Dosage: UNK (INJECTION NOS)
     Route: 050
     Dates: start: 20210112
  6. COSENTYX [Suspect]
     Active Substance: SECUKINUMAB
     Dosage: 300 MG, QMO
     Route: 058
  7. COSENTYX [Suspect]
     Active Substance: SECUKINUMAB
     Dosage: 300 MG, QMO
     Route: 058
  8. COSENTYX [Suspect]
     Active Substance: SECUKINUMAB
     Dosage: UNK
     Route: 065
  9. SILIGAZ [Concomitant]
     Indication: Arrhythmia
     Dosage: 25 MG, QD
     Route: 048

REACTIONS (40)
  - Wound infection [Recovering/Resolving]
  - Skin lesion [Recovering/Resolving]
  - Pyrexia [Recovered/Resolved]
  - Skin discolouration [Not Recovered/Not Resolved]
  - Scab [Recovering/Resolving]
  - Asthenia [Recovering/Resolving]
  - Somnolence [Recovered/Resolved]
  - Gait disturbance [Recovered/Resolved]
  - Pain [Recovering/Resolving]
  - Inflammation of wound [Recovering/Resolving]
  - Malaise [Not Recovered/Not Resolved]
  - Oedema peripheral [Unknown]
  - Insomnia [Unknown]
  - Sluggishness [Unknown]
  - Arthralgia [Unknown]
  - Fungal infection [Unknown]
  - Purulent discharge [Unknown]
  - Crepitations [Unknown]
  - Skin burning sensation [Recovering/Resolving]
  - Inflammation [Recovered/Resolved]
  - Back pain [Recovered/Resolved]
  - Pain in extremity [Recovered/Resolved]
  - Dysstasia [Recovered/Resolved]
  - Ill-defined disorder [Unknown]
  - Symptom recurrence [Recovered/Resolved]
  - Symptom recurrence [Recovered/Resolved]
  - Lacrimal disorder [Recovered/Resolved]
  - Psoriasis [Recovering/Resolving]
  - Erythema [Recovered/Resolved]
  - Sensitive skin [Recovering/Resolving]
  - Macule [Recovering/Resolving]
  - Wound [Not Recovered/Not Resolved]
  - Blister [Unknown]
  - Skin exfoliation [Recovered/Resolved]
  - Pruritus [Recovered/Resolved]
  - Scratch [Unknown]
  - Dry skin [Unknown]
  - Peripheral swelling [Recovering/Resolving]
  - Dysstasia [Recovering/Resolving]
  - Pain in extremity [Recovering/Resolving]

NARRATIVE: CASE EVENT DATE: 20200301
